FAERS Safety Report 5753603-6 (Version None)
Quarter: 2008Q2

REPORT INFORMATION
  Report Type: 
  Country: None (occurrence: None)
  Receive Date: 20080530
  Receipt Date: 20080519
  Transmission Date: 20081010
  Serious: Yes (Other)
  Sender: FDA-Public Use
  Company Number: US-JNJFOC-20080301664

PATIENT
  Sex: Female
  Weight: 63.5 kg

DRUGS (7)
  1. DURAGESIC-100 [Suspect]
     Indication: BACK PAIN
     Dosage: 3X 12.5UG/HR PATCHES
     Route: 062
  2. DURAGESIC-100 [Suspect]
     Indication: PAIN
     Dosage: 3X 12.5 UG/HR PATCHES
     Route: 062
  3. FENTANYL TRANSDERMAL SYSTEM [Suspect]
     Indication: BACK PAIN
     Route: 062
  4. FENTANYL TRANSDERMAL SYSTEM [Suspect]
     Indication: PAIN
     Dosage: 3X 12.5 UG/HR PATCHES
     Route: 062
  5. ULTRACET [Concomitant]
     Indication: PAIN
     Dosage: AS NEEDED
     Route: 048
  6. ALLEGRA [Concomitant]
     Indication: SEASONAL ALLERGY
     Route: 048
  7. PREVACID [Concomitant]
     Indication: GASTROOESOPHAGEAL REFLUX DISEASE
     Route: 048

REACTIONS (17)
  - APATHY [None]
  - BACK PAIN [None]
  - CONSTIPATION [None]
  - DYSSTASIA [None]
  - ESSENTIAL TREMOR [None]
  - EYE SWELLING [None]
  - FATIGUE [None]
  - HEADACHE [None]
  - LOCAL SWELLING [None]
  - MALAISE [None]
  - MEMORY IMPAIRMENT [None]
  - PARKINSON'S DISEASE [None]
  - SOMNOLENCE [None]
  - VERTIGO [None]
  - VITAMIN B COMPLEX DEFICIENCY [None]
  - WITHDRAWAL SYNDROME [None]
  - WRONG TECHNIQUE IN DRUG USAGE PROCESS [None]
